FAERS Safety Report 9929768 (Version 2)
Quarter: 2014Q2

REPORT INFORMATION
  Report Type: Spontaneous
  Country: US (occurrence: US)
  Receive Date: 20140227
  Receipt Date: 20140528
  Transmission Date: 20141212
  Serious: Yes (Other)
  Sender: FDA-Public Use
  Company Number: US-PURDUE-USA-2014-0110174

PATIENT
  Age: 84 Year
  Sex: Male
  Weight: 68.27 kg

DRUGS (2)
  1. INTERMEZZO [Suspect]
     Indication: TERMINAL INSOMNIA
     Dosage: 1.75 MG, PRN
     Route: 065
  2. ONGLYZA [Concomitant]
     Indication: DIABETES MELLITUS
     Dosage: UNKNOWN

REACTIONS (1)
  - Drug dependence [Unknown]
